FAERS Safety Report 11554683 (Version 1)
Quarter: 2015Q3

REPORT INFORMATION
  Report Type: Spontaneous
  Country: DE (occurrence: DE)
  Receive Date: 20150925
  Receipt Date: 20150925
  Transmission Date: 20151125
  Serious: Yes (Other)
  Sender: FDA-Public Use
  Company Number: DE-AMGEN-DEUSP2015098855

PATIENT
  Sex: Male

DRUGS (1)
  1. XGEVA [Suspect]
     Active Substance: DENOSUMAB
     Indication: PROSTATE CANCER METASTATIC
     Dosage: 120 MG, UNK
     Route: 065
     Dates: start: 201311, end: 201506

REACTIONS (2)
  - Osteonecrosis of jaw [Unknown]
  - Pain [Unknown]

NARRATIVE: CASE EVENT DATE: 201506
